FAERS Safety Report 6158418-5 (Version None)
Quarter: 2009Q2

REPORT INFORMATION
  Report Type: 
  Country: None (occurrence: None)
  Receive Date: 20090417
  Receipt Date: 20090415
  Transmission Date: 20091009
  Serious: Yes (Life-Threatening, Hospitalization, Other)
  Sender: FDA-Public Use
  Company Number: TR-BRISTOL-MYERS SQUIBB COMPANY-14545222

PATIENT
  Age: 20 Year
  Sex: Female
  Weight: 77 kg

DRUGS (2)
  1. METFORMIN HCL [Suspect]
     Indication: OBESITY
  2. METFORMIN HCL [Suspect]
     Indication: GLUCOSE TOLERANCE IMPAIRED

REACTIONS (6)
  - COAGULATION FACTOR DECREASED [None]
  - COAGULATION TIME SHORTENED [None]
  - DRUG TOXICITY [None]
  - INTENTIONAL OVERDOSE [None]
  - METABOLIC ACIDOSIS [None]
  - SUICIDE ATTEMPT [None]
